FAERS Safety Report 18538709 (Version 1)
Quarter: 2020Q4

REPORT INFORMATION
  Report Type: Spontaneous
  Country: FR (occurrence: FR)
  Receive Date: 20201124
  Receipt Date: 20201124
  Transmission Date: 20210114
  Serious: Yes (Death, Hospitalization, Other)
  Sender: FDA-Public Use
  Company Number: FR-LUPIN PHARMACEUTICALS INC.-2020-09219

PATIENT
  Age: 82 Year
  Sex: Male

DRUGS (1)
  1. CEFTRIAXONE. [Suspect]
     Active Substance: CEFTRIAXONE
     Indication: PNEUMONIA
     Dosage: UNK
     Route: 065

REACTIONS (9)
  - Nervous system disorder [Fatal]
  - Angiopathy [Fatal]
  - Multiple organ dysfunction syndrome [Fatal]
  - Hyperfibrinogenaemia [Fatal]
  - Lactic acidosis [Fatal]
  - Skin disorder [Fatal]
  - Haemodynamic instability [Fatal]
  - Acute kidney injury [Fatal]
  - Autoimmune haemolytic anaemia [Fatal]
